FAERS Safety Report 20670495 (Version 7)
Quarter: 2024Q3

REPORT INFORMATION
  Report Type: Report from Study
  Country: CA (occurrence: CA)
  Receive Date: 20220404
  Receipt Date: 20240814
  Transmission Date: 20241016
  Serious: Yes (Other)
  Sender: ROCHE
  Company Number: CA-ROCHE-1804535

PATIENT
  Age: 36 Year
  Sex: Female
  Weight: 140.0 kg

DRUGS (43)
  1. ACTEMRA [Suspect]
     Active Substance: TOCILIZUMAB
     Indication: Rheumatoid arthritis
     Route: 042
  2. ACTEMRA [Suspect]
     Active Substance: TOCILIZUMAB
     Route: 042
     Dates: start: 20160829, end: 20220823
  3. ACTEMRA [Suspect]
     Active Substance: TOCILIZUMAB
     Route: 042
     Dates: start: 20170704
  4. ACTEMRA [Suspect]
     Active Substance: TOCILIZUMAB
     Dosage: INFUSION NUMBER: 17
     Route: 042
     Dates: start: 20171219
  5. ACTEMRA [Suspect]
     Active Substance: TOCILIZUMAB
     Route: 042
     Dates: start: 20180809
  6. ACTEMRA [Suspect]
     Active Substance: TOCILIZUMAB
     Route: 042
     Dates: start: 2014
  7. ACTEMRA [Suspect]
     Active Substance: TOCILIZUMAB
     Route: 042
     Dates: start: 2014
  8. ACTEMRA [Suspect]
     Active Substance: TOCILIZUMAB
     Route: 042
  9. ACTEMRA [Suspect]
     Active Substance: TOCILIZUMAB
     Route: 042
  10. ACTEMRA [Suspect]
     Active Substance: TOCILIZUMAB
     Route: 042
  11. ACTEMRA [Suspect]
     Active Substance: TOCILIZUMAB
     Route: 042
  12. ACTEMRA [Suspect]
     Active Substance: TOCILIZUMAB
     Route: 042
  13. ACTEMRA [Suspect]
     Active Substance: TOCILIZUMAB
     Route: 042
  14. ACTEMRA [Suspect]
     Active Substance: TOCILIZUMAB
     Route: 042
  15. ACTEMRA [Suspect]
     Active Substance: TOCILIZUMAB
     Route: 042
  16. ACTEMRA [Suspect]
     Active Substance: TOCILIZUMAB
     Route: 042
  17. ACTEMRA [Suspect]
     Active Substance: TOCILIZUMAB
     Route: 042
  18. ACTEMRA [Suspect]
     Active Substance: TOCILIZUMAB
     Route: 042
  19. ACTEMRA [Suspect]
     Active Substance: TOCILIZUMAB
     Route: 042
  20. ACTEMRA [Suspect]
     Active Substance: TOCILIZUMAB
     Route: 042
  21. ACTEMRA [Suspect]
     Active Substance: TOCILIZUMAB
     Route: 042
  22. ACTEMRA [Suspect]
     Active Substance: TOCILIZUMAB
     Route: 042
  23. ACTEMRA [Suspect]
     Active Substance: TOCILIZUMAB
     Route: 042
  24. ACTEMRA [Suspect]
     Active Substance: TOCILIZUMAB
     Route: 042
  25. ACTEMRA [Suspect]
     Active Substance: TOCILIZUMAB
     Route: 042
  26. ACTEMRA [Suspect]
     Active Substance: TOCILIZUMAB
     Route: 042
  27. ACTEMRA [Suspect]
     Active Substance: TOCILIZUMAB
     Route: 042
  28. ACTEMRA [Suspect]
     Active Substance: TOCILIZUMAB
     Route: 042
  29. ACTEMRA [Suspect]
     Active Substance: TOCILIZUMAB
     Route: 042
  30. ACTEMRA [Suspect]
     Active Substance: TOCILIZUMAB
     Route: 042
  31. ACTEMRA [Suspect]
     Active Substance: TOCILIZUMAB
     Route: 042
  32. ACTEMRA [Suspect]
     Active Substance: TOCILIZUMAB
     Route: 042
  33. ACTEMRA [Suspect]
     Active Substance: TOCILIZUMAB
     Route: 042
  34. ACTEMRA [Suspect]
     Active Substance: TOCILIZUMAB
     Route: 042
  35. ACTEMRA [Suspect]
     Active Substance: TOCILIZUMAB
     Route: 042
  36. ACTEMRA [Suspect]
     Active Substance: TOCILIZUMAB
     Indication: Rheumatoid arthritis
     Route: 058
  37. TRIAZIDE [HYDROCHLOROTHIAZIDE;TRIAMTERENE] [Concomitant]
     Indication: Product used for unknown indication
     Route: 065
  38. PANTOPRAZOLE MAGNESIUM [Concomitant]
     Active Substance: PANTOPRAZOLE MAGNESIUM
     Indication: Product used for unknown indication
     Dosage: ONGOING
     Route: 065
  39. CYMBALTA [Concomitant]
     Active Substance: DULOXETINE HYDROCHLORIDE
     Indication: Product used for unknown indication
     Route: 065
  40. HYDROCHLOROTHIAZIDE\TRIAMTERENE [Concomitant]
     Active Substance: HYDROCHLOROTHIAZIDE\TRIAMTERENE
     Indication: Product used for unknown indication
  41. ADVIL [Concomitant]
     Active Substance: IBUPROFEN\IBUPROFEN SODIUM
     Indication: Product used for unknown indication
  42. CALCIUM [Concomitant]
     Active Substance: CALCIUM
     Indication: Product used for unknown indication
  43. MAGNESIUM [Concomitant]
     Active Substance: MAGNESIUM
     Indication: Product used for unknown indication

REACTIONS (31)
  - Dyspepsia [Recovered/Resolved]
  - Hypertension [Not Recovered/Not Resolved]
  - Spinal osteoarthritis [Unknown]
  - Meniscus injury [Not Recovered/Not Resolved]
  - Ankle fracture [Unknown]
  - Lower limb fracture [Unknown]
  - Foot fracture [Unknown]
  - Blood pressure increased [Unknown]
  - Arthralgia [Not Recovered/Not Resolved]
  - Oxygen saturation decreased [Unknown]
  - Illness [Not Recovered/Not Resolved]
  - Conjunctivitis [Recovered/Resolved]
  - Influenza [Unknown]
  - Erythema [Unknown]
  - Dermatitis [Unknown]
  - Blood pressure systolic increased [Unknown]
  - Body temperature increased [Unknown]
  - Blood pressure systolic abnormal [Unknown]
  - Arthritis [Unknown]
  - Blood pressure diastolic increased [Unknown]
  - Blood pressure diastolic abnormal [Unknown]
  - Nasopharyngitis [Unknown]
  - Weight increased [Recovering/Resolving]
  - Disability assessment scale score increased [Recovering/Resolving]
  - Grief reaction [Unknown]
  - Drug ineffective [Unknown]
  - Depression [Unknown]
  - Anxiety [Unknown]
  - Peripheral swelling [Unknown]
  - Bursitis [Unknown]
  - Arthralgia [Unknown]

NARRATIVE: CASE EVENT DATE: 20150101
